FAERS Safety Report 4364895-2 (Version None)
Quarter: 2004Q2

REPORT INFORMATION
  Report Type: 
  Country: None (occurrence: None)
  Receive Date: 20040526
  Receipt Date: 20040519
  Transmission Date: 20050107
  Serious: Yes (Hospitalization)
  Sender: FDA-Public Use
  Company Number: SA-BRISTOL-MYERS SQUIBB COMPANY-12591368

PATIENT
  Age: 5 Month
  Sex: Male

DRUGS (2)
  1. CAPTOPRIL [Suspect]
     Route: 048
  2. FUROSEMIDE [Suspect]
     Route: 048

REACTIONS (2)
  - ATRIOVENTRICULAR CANAL [None]
  - CHYLOTHORAX [None]
